FAERS Safety Report 8356874-5 (Version None)
Quarter: 2012Q2

REPORT INFORMATION
  Report Type: 
  Country: None (occurrence: None)
  Receive Date: 20120514
  Receipt Date: 20120504
  Transmission Date: 20120825
  Serious: No
  Sender: FDA-Public Use
  Company Number: US-PFIZER INC-2012110037

PATIENT
  Age: 68 Year
  Sex: Male
  Weight: 92.971 kg

DRUGS (1)
  1. NORVASC [Suspect]
     Indication: HYPERTENSION
     Dosage: 10 MG, DAILY

REACTIONS (2)
  - BONE ATROPHY [None]
  - LOOSE TOOTH [None]
